FAERS Safety Report 6566954-2 (Version None)
Quarter: 2010Q1

REPORT INFORMATION
  Report Type: 
  Country: None (occurrence: None)
  Receive Date: 20100202
  Receipt Date: 20100121
  Transmission Date: 20100710
  Serious: Yes (Other)
  Sender: FDA-Public Use
  Company Number: US-SANOFI-AVENTIS-2010SA004382

PATIENT
  Age: 64 Year
  Sex: Female

DRUGS (2)
  1. LANTUS [Suspect]
     Dosage: DOSE:15 UNIT(S)
     Route: 058
     Dates: start: 20030101
  2. OPTICLICK [Suspect]
     Dates: start: 20070101

REACTIONS (2)
  - FALL [None]
  - HUMERUS FRACTURE [None]
